FAERS Safety Report 7411224-3 (Version None)
Quarter: 2011Q2

REPORT INFORMATION
  Report Type: 
  Country: None (occurrence: None)
  Receive Date: 20110413
  Receipt Date: 20100408
  Transmission Date: 20111010
  Serious: Yes (Other)
  Sender: FDA-Public Use
  Company Number: US-BRISTOL-MYERS SQUIBB COMPANY-15056476

PATIENT
  Sex: Female

DRUGS (3)
  1. ERBITUX [Suspect]
     Indication: LUNG NEOPLASM MALIGNANT
     Dosage: RESTARTED ON 08APR2010
     Dates: start: 20100101
  2. CARBOPLATIN [Concomitant]
  3. NAVELBINE [Concomitant]

REACTIONS (1)
  - HYPERSENSITIVITY [None]
